FAERS Safety Report 16465155 (Version 3)
Quarter: 2019Q3

REPORT INFORMATION
  Report Type: Spontaneous
  Country: US (occurrence: US)
  Receive Date: 20190621
  Receipt Date: 20190925
  Transmission Date: 20191004
  Serious: Yes (Other)
  Sender: FDA-Public Use
  Company Number: US-ASTRAZENECA-2019SE11288

PATIENT
  Sex: Female

DRUGS (54)
  1. NEXIUM [Suspect]
     Active Substance: ESOMEPRAZOLE MAGNESIUM
     Route: 048
  2. NITROGLYCERIN. [Concomitant]
     Active Substance: NITROGLYCERIN
  3. SIMVASTATIN. [Concomitant]
     Active Substance: SIMVASTATIN
  4. CLOPIDOGREL [Concomitant]
     Active Substance: CLOPIDOGREL BISULFATE
  5. BISACODYL. [Concomitant]
     Active Substance: BISACODYL
  6. FONDAPARINUX [Concomitant]
     Active Substance: FONDAPARINUX
  7. LANTUS [Concomitant]
     Active Substance: INSULIN GLARGINE
  8. IBUPROFEN. [Concomitant]
     Active Substance: IBUPROFEN
  9. PREVACID [Suspect]
     Active Substance: LANSOPRAZOLE
     Route: 065
  10. HYDROCODONE BITARTRATE AND ACETAMINOPHEN [Concomitant]
     Active Substance: ACETAMINOPHEN\HYDROCODONE BITARTRATE
     Dates: start: 20130513
  11. PREDNISONE. [Concomitant]
     Active Substance: PREDNISONE
  12. TORSEMIDE. [Concomitant]
     Active Substance: TORSEMIDE
  13. OMEPRAZOLE. [Suspect]
     Active Substance: OMEPRAZOLE
     Dosage: GENERIC-40MG DAILY
     Route: 065
     Dates: start: 20110722, end: 20120124
  14. PREVACID [Suspect]
     Active Substance: LANSOPRAZOLE
     Route: 065
     Dates: start: 20100128
  15. VENTOLIN [Concomitant]
     Active Substance: ALBUTEROL SULFATE
  16. LEVAQUIN [Concomitant]
     Active Substance: LEVOFLOXACIN
  17. AZITHROMYCIN ANHYDROUS. [Concomitant]
     Active Substance: AZITHROMYCIN ANHYDROUS
  18. ATORVASTATIN [Concomitant]
     Active Substance: ATORVASTATIN
  19. CIPROFLOXACIN. [Concomitant]
     Active Substance: CIPROFLOXACIN
  20. BACLOFEN. [Concomitant]
     Active Substance: BACLOFEN
  21. ASPIRIN. [Concomitant]
     Active Substance: ASPIRIN
  22. LORAZEPAM. [Concomitant]
     Active Substance: LORAZEPAM
     Dates: start: 20130604
  23. HYDROXYZINE [Concomitant]
     Active Substance: HYDROXYZINE HYDROCHLORIDE
  24. FERROUS SULFATE. [Concomitant]
     Active Substance: FERROUS SULFATE
  25. SPIRONOLACTONE. [Concomitant]
     Active Substance: SPIRONOLACTONE
  26. ONDANSETRON [Concomitant]
     Active Substance: ONDANSETRON
  27. ACETAMINOPHEN-CODEINE [Concomitant]
     Active Substance: ACETAMINOPHEN\CODEINE PHOSPHATE
  28. PREVACID [Suspect]
     Active Substance: LANSOPRAZOLE
     Dosage: GENERIC-30MG DAILY
     Route: 065
     Dates: start: 20100607, end: 20110227
  29. LOSARTAN. [Concomitant]
     Active Substance: LOSARTAN
     Dates: start: 20130402
  30. CARVEDILOL. [Concomitant]
     Active Substance: CARVEDILOL
     Dates: start: 20160129
  31. PROAIR HFA [Concomitant]
     Active Substance: ALBUTEROL SULFATE
  32. LIPITOR [Concomitant]
     Active Substance: ATORVASTATIN CALCIUM
  33. NEXIUM [Suspect]
     Active Substance: ESOMEPRAZOLE MAGNESIUM
     Dosage: GENERIC-40MG DAILY
     Route: 065
     Dates: start: 20170315, end: 20171202
  34. OMEPRAZOLE. [Suspect]
     Active Substance: OMEPRAZOLE
     Dosage: GENERIC-40MG DAILY
     Route: 065
     Dates: start: 20120411, end: 20130101
  35. HUMALOG [Concomitant]
     Active Substance: INSULIN LISPRO
  36. CARVEDIOL [Concomitant]
     Active Substance: CARVEDILOL
  37. ALENDRONATE SODIUM. [Concomitant]
     Active Substance: ALENDRONATE SODIUM
  38. NOVOLIN [Concomitant]
     Active Substance: INSULIN HUMAN
  39. METHOCARBAMOL. [Concomitant]
     Active Substance: METHOCARBAMOL
  40. LORAZEPAM. [Concomitant]
     Active Substance: LORAZEPAM
  41. CEFPODOXIME [Concomitant]
     Active Substance: CEFPODOXIME
  42. NEXIUM [Suspect]
     Active Substance: ESOMEPRAZOLE MAGNESIUM
     Route: 048
     Dates: start: 20140613, end: 20170212
  43. DEXILANT [Suspect]
     Active Substance: DEXLANSOPRAZOLE
     Route: 065
  44. ATORVASTATIN [Concomitant]
     Active Substance: ATORVASTATIN
     Dates: start: 20090130
  45. LISINOPRIL. [Concomitant]
     Active Substance: LISINOPRIL
  46. FUROSEMIDE. [Concomitant]
     Active Substance: FUROSEMIDE
  47. RANITIDINE. [Concomitant]
     Active Substance: RANITIDINE
  48. HYDROMORPHONE [Concomitant]
     Active Substance: HYDROMORPHONE
  49. VITAMIN D2 [Concomitant]
     Active Substance: ERGOCALCIFEROL
  50. HYDROCODONE-ACETAMINOPHEN [Concomitant]
     Active Substance: ACETAMINOPHEN\HYDROCODONE
  51. LOSARTAN. [Concomitant]
     Active Substance: LOSARTAN
  52. HUMULIN NOS [Concomitant]
     Active Substance: INSULIN HUMAN
  53. PLAVIX [Concomitant]
     Active Substance: CLOPIDOGREL BISULFATE
  54. ENABLEX [Concomitant]
     Active Substance: DARIFENACIN HYDROBROMIDE

REACTIONS (5)
  - Renal injury [Unknown]
  - Acute kidney injury [Not Recovered/Not Resolved]
  - Chronic kidney disease [Not Recovered/Not Resolved]
  - Renal failure [Not Recovered/Not Resolved]
  - Rebound acid hypersecretion [Not Recovered/Not Resolved]
